FAERS Safety Report 9732627 (Version 4)
Quarter: 2014Q1

REPORT INFORMATION
  Report Type: Spontaneous
  Country: US (occurrence: US)
  Receive Date: 20131204
  Receipt Date: 20140204
  Transmission Date: 20141002
  Serious: No
  Sender: FDA-Public Use
  Company Number: US-GILEAD-2013-0088919

PATIENT
  Sex: Female

DRUGS (3)
  1. LETAIRIS [Suspect]
     Indication: PULMONARY HYPERTENSION
     Dosage: 5 MG, QD
     Route: 065
     Dates: start: 20130829
  2. LETAIRIS [Suspect]
     Indication: HEART DISEASE CONGENITAL
  3. LETAIRIS [Suspect]
     Indication: ATRIAL SEPTAL DEFECT

REACTIONS (8)
  - Syncope [Unknown]
  - Fall [Unknown]
  - Dyspnoea [Unknown]
  - Nasal congestion [Unknown]
  - Hot flush [Unknown]
  - Local swelling [Unknown]
  - Fluid retention [Unknown]
  - Local swelling [Unknown]
